FAERS Safety Report 9788683 (Version 3)
Quarter: 2014Q2

REPORT INFORMATION
  Report Type: Report from Study
  Country: ES (occurrence: ES)
  Receive Date: 20131230
  Receipt Date: 20140512
  Transmission Date: 20141212
  Serious: Yes (Hospitalization)
  Sender: FDA-Public Use
  Company Number: ES-AMGEN-ESPCT2013090623

PATIENT
  Age: 70 Year
  Sex: Male

DRUGS (4)
  1. PANITUMUMAB [Suspect]
     Indication: HEAD AND NECK CANCER
     Dosage: UNK UNK, Q2WK
     Route: 042
     Dates: start: 20130905
  2. PACLITAXEL [Concomitant]
     Indication: HEAD AND NECK CANCER
     Dosage: UNK UNK, QWK
     Route: 042
     Dates: start: 20130905, end: 20131023
  3. MIRTAZAPINE [Concomitant]
     Dosage: 30 UNK, QD
     Route: 048
     Dates: start: 201301
  4. LYRICA [Concomitant]
     Dosage: UNK UNK, QD
     Route: 048
     Dates: start: 201301

REACTIONS (1)
  - Pyrexia [Recovered/Resolved]
